FAERS Safety Report 15526180 (Version 2)
Quarter: 2018Q4

REPORT INFORMATION
  Report Type: Spontaneous
  Country: NL (occurrence: NL)
  Receive Date: 20181018
  Receipt Date: 20181019
  Transmission Date: 20190205
  Serious: Yes (Hospitalization, Disabling, Other)
  Sender: FDA-Public Use
  Company Number: NL-009507513-1810NLD005593

PATIENT
  Sex: Female

DRUGS (7)
  1. PROFASI [Suspect]
     Active Substance: GONADOTROPHIN, CHORIONIC
     Indication: ASSISTED FERTILISATION
     Dosage: CONCOMITANT DRUG NOT AVAILABLE, 10000 IU PLUS SOLVENT 1 ML
     Route: 065
  2. MENOGON [Suspect]
     Active Substance: MENOTROPINS
     Indication: ASSISTED FERTILISATION
     Dosage: 75 IU, UNK
     Route: 065
  3. PROGESTERONE. [Suspect]
     Active Substance: PROGESTERONE
     Indication: ASSISTED FERTILISATION
     Dosage: 100 MG
     Route: 065
  4. HUMEGON [Suspect]
     Active Substance: MENOTROPINS
     Indication: ASSISTED FERTILISATION
     Dosage: 75 IU PLUS SOLVENT 1 ML, UNK
     Route: 065
  5. DECAPEPTYL (ACETATE) [Suspect]
     Active Substance: TRIPTORELIN ACETATE
     Indication: ASSISTED FERTILISATION
     Dosage: 3.75 MG (0.5 MG/ML) DISPOSABLE SYRINGE 0.2 ML, UNK
     Route: 065
  6. PREGNYL [Suspect]
     Active Substance: CHORIOGONADOTROPIN ALFA
     Indication: ASSISTED FERTILISATION
     Dosage: 5000 IU
     Route: 065
  7. METRODIN [Suspect]
     Active Substance: UROFOLLITROPIN
     Indication: ASSISTED FERTILISATION
     Dosage: CONCOMITANT DRUG NOT AVAILABLE, 75 IU VIAL PLUS SOLVENT 1 ML
     Route: 065

REACTIONS (8)
  - Product administration error [Recovered/Resolved]
  - Abortion spontaneous [Recovered/Resolved]
  - Osteoarthritis [Unknown]
  - Mobility decreased [Recovered/Resolved]
  - Product use in unapproved indication [Recovered/Resolved]
  - Pelvic pain [Recovered/Resolved]
  - Fibromyalgia [Recovered/Resolved]
  - Spinal fracture [Unknown]
